FAERS Safety Report 20016673 (Version 1)
Quarter: 2021Q4

REPORT INFORMATION
  Report Type: Spontaneous
  Country: US (occurrence: None)
  Receive Date: 20211104
  Receipt Date: 20211104
  Transmission Date: 20220303
  Serious: Yes (Other)
  Sender: FDA-Public Use
  Company Number: None

PATIENT
  Age: 61 Year

DRUGS (15)
  1. HIZENTRA [Suspect]
     Active Substance: HUMAN IMMUNOGLOBULIN G
     Indication: Chronic inflammatory demyelinating polyradiculoneuropathy
     Dosage: OTHER FREQUENCY : WEEKLY;?
     Route: 058
     Dates: start: 20170406
  2. Acyclovir 400mg PO BID [Concomitant]
  3. Coenzyme Q10 orally daily [Concomitant]
  4. Eliquis 25mg PO BID [Concomitant]
  5. Losartan 50mg PO daily [Concomitant]
  6. Magnesium oxide 400mg PO daily [Concomitant]
  7. Metoprolol tartrate 100mg PO daily [Concomitant]
  8. Norvasc 10mg PO daily [Concomitant]
  9. Omega 3 1000mg PO daily [Concomitant]
  10. Polyehtylene glycol 3350 PO daily [Concomitant]
  11. Prevacid 15mg PO daily [Concomitant]
  12. Sertraline 100mg PO nightly [Concomitant]
  13. Tramadol 50mg PO every 6 hours [Concomitant]
  14. Vitamin d3 50000 units PO weekly [Concomitant]
  15. Xeljanz XR 11mg PO daily [Concomitant]

REACTIONS (5)
  - Infusion site erythema [None]
  - Infusion site pruritus [None]
  - Infusion site reaction [None]
  - Infusion site warmth [None]
  - Product quality issue [None]

NARRATIVE: CASE EVENT DATE: 20211025
